FAERS Safety Report 5482137-1 (Version None)
Quarter: 2007Q4

REPORT INFORMATION
  Report Type: 
  Country: None (occurrence: None)
  Receive Date: 20071011
  Receipt Date: 20071004
  Transmission Date: 20080405
  Serious: Yes (Other)
  Sender: FDA-Public Use
  Company Number: FR-JNJFOC-20040707954

PATIENT
  Sex: Female
  Weight: 49 kg

DRUGS (9)
  1. REMINYL [Suspect]
     Route: 048
  2. REMINYL [Suspect]
     Route: 048
  3. REMINYL [Suspect]
     Indication: DEMENTIA ALZHEIMER'S TYPE
     Route: 048
  4. RISPERDAL [Suspect]
     Indication: ABNORMAL BEHAVIOUR
     Route: 048
     Dates: start: 20030501, end: 20040304
  5. LASIX [Concomitant]
     Route: 065
  6. FLECAINIDE ACETATE [Concomitant]
     Route: 065
  7. EQUANIL [Concomitant]
     Route: 065
  8. POTASSIUM CHLORIDE [Concomitant]
     Route: 065
  9. GAVISCON [Concomitant]
     Route: 065

REACTIONS (3)
  - BRADYCARDIA [None]
  - DYSTONIA [None]
  - PLEUROTHOTONUS [None]
